FAERS Safety Report 10898315 (Version 1)
Quarter: 2015Q1

REPORT INFORMATION
  Report Type: Report from Study
  Country: US (occurrence: US)
  Receive Date: 20150309
  Receipt Date: 20150309
  Transmission Date: 20150721
  Serious: No
  Sender: FDA-Public Use
  Company Number: US-ABBVIE-14P-163-1262364-00

PATIENT
  Age: 23 Year
  Sex: Female
  Weight: 68.1 kg

DRUGS (6)
  1. AMITRIPTYLINE [Suspect]
     Active Substance: AMITRIPTYLINE
     Indication: CYSTITIS INTERSTITIAL
     Dates: start: 201404
  2. LUPRON DEPOT [Suspect]
     Active Substance: LEUPROLIDE ACETATE
     Indication: ENDOMETRIOSIS
     Route: 030
     Dates: start: 201404, end: 201407
  3. LUPRON DEPOT [Suspect]
     Active Substance: LEUPROLIDE ACETATE
     Indication: ENDOMETRIOSIS
     Route: 030
     Dates: start: 20140730
  4. OMEPRAZOLE. [Concomitant]
     Active Substance: OMEPRAZOLE
     Indication: GASTROOESOPHAGEAL REFLUX DISEASE
  5. GIANVI [Concomitant]
     Active Substance: DROSPIRENONE\ETHINYL ESTRADIOL
     Indication: PRODUCT USED FOR UNKNOWN INDICATION
  6. NORETHINDRONE. [Concomitant]
     Active Substance: NORETHINDRONE
     Indication: PROGESTIN REPLACEMENT THERAPY

REACTIONS (6)
  - Mood swings [Not Recovered/Not Resolved]
  - Alopecia [Not Recovered/Not Resolved]
  - Back pain [Not Recovered/Not Resolved]
  - Vitamin D deficiency [Unknown]
  - Alopecia [Unknown]
  - Weight increased [Not Recovered/Not Resolved]

NARRATIVE: CASE EVENT DATE: 201404
